FAERS Safety Report 9511223 (Version 1)
Quarter: 2013Q3

REPORT INFORMATION
  Report Type: Spontaneous
  Country: US (occurrence: None)
  Receive Date: 20130909
  Receipt Date: 20130909
  Transmission Date: 20140515
  Serious: No
  Sender: FDA-Public Use
  Company Number: None

PATIENT
  Age: 71 Year
  Sex: Male
  Weight: 83.92 kg

DRUGS (13)
  1. CYCLOBENZAPRINE [Suspect]
     Indication: MUSCLE RELAXANT THERAPY
     Route: 048
     Dates: start: 20130814, end: 20130815
  2. NEXIUM [Concomitant]
  3. AMOLODIPINE [Concomitant]
  4. CELBREX [Concomitant]
  5. CARVEDILOL [Concomitant]
  6. VOLTAREN GEL [Concomitant]
  7. ZOLPIDEM [Concomitant]
  8. CENTRUM SILVER [Concomitant]
  9. CALCIUM [Concomitant]
  10. VITAMIN D3 [Concomitant]
  11. ASPIRIN [Concomitant]
  12. ZINC [Concomitant]
  13. ALPAZOLAM [Concomitant]

REACTIONS (1)
  - Suicidal ideation [None]
